FAERS Safety Report 6087164-1 (Version None)
Quarter: 2009Q1

REPORT INFORMATION
  Report Type: 
  Country: None (occurrence: None)
  Receive Date: 20090223
  Receipt Date: 20090211
  Transmission Date: 20090719
  Serious: Yes (Other)
  Sender: FDA-Public Use
  Company Number: US-PFIZER INC-2009169070

PATIENT
  Sex: Male
  Weight: 95 kg

DRUGS (8)
  1. TIKOSYN [Suspect]
     Indication: HEART RATE IRREGULAR
     Dates: start: 20081220, end: 20090210
  2. GLIPIZIDE [Suspect]
     Indication: DIABETES MELLITUS
  3. DOXAZOSIN MESILATE [Concomitant]
     Dosage: 4 MG, 1X/DAY
  4. OMEPRAZOLE [Concomitant]
     Dosage: 20 MG, UNK
  5. AMLODIPINE [Concomitant]
     Dosage: 10 MG, 1X/DAY
  6. ALLOPURINOL [Concomitant]
     Dosage: 100 MG, 2X/DAY
  7. COUMADIN [Concomitant]
     Dosage: 5 MG, 1X/DAY
  8. MAGNESIUM OXIDE [Concomitant]
     Dosage: 400 MG, UNK

REACTIONS (2)
  - BLOOD GLUCOSE INCREASED [None]
  - VISUAL IMPAIRMENT [None]
